FAERS Safety Report 15996133 (Version 3)
Quarter: 2022Q1

REPORT INFORMATION
  Report Type: Spontaneous
  Country: US (occurrence: US)
  Receive Date: 20190222
  Receipt Date: 20220302
  Transmission Date: 20220423
  Serious: Yes (Other)
  Sender: FDA-Public Use
  Company Number: PHEH2019US007753

PATIENT
  Sex: Female

DRUGS (1)
  1. TASIGNA [Suspect]
     Active Substance: NILOTINIB
     Indication: Chronic myeloid leukaemia
     Dosage: 1 DF, BID
     Route: 048
     Dates: start: 20130802, end: 201701

REACTIONS (16)
  - Diabetes mellitus [Unknown]
  - Myocardial infarction [Unknown]
  - Spinal osteoarthritis [Unknown]
  - Diastolic dysfunction [Unknown]
  - Pruritus [Unknown]
  - Muscle spasms [Unknown]
  - Chest pain [Unknown]
  - Dyspnoea [Unknown]
  - Injury [Unknown]
  - Back pain [Unknown]
  - Cerebrovascular disorder [Unknown]
  - Rash [Unknown]
  - Arteriosclerosis [Unknown]
  - Pain [Unknown]
  - Anxiety [Unknown]
  - Emotional distress [Unknown]
